FAERS Safety Report 8957708 (Version 3)
Quarter: 2014Q1

REPORT INFORMATION
  Report Type: Spontaneous
  Country: BR (occurrence: BR)
  Receive Date: 20121211
  Receipt Date: 20140109
  Transmission Date: 20141002
  Serious: No
  Sender: FDA-Public Use
  Company Number: BR-ROCHE-1166959

PATIENT
  Sex: Female
  Weight: 72 kg

DRUGS (1)
  1. ROACUTAN [Suspect]
     Indication: PRODUCT USED FOR UNKNOWN INDICATION
     Route: 048
     Dates: start: 201205, end: 201211

REACTIONS (2)
  - Pregnancy [Unknown]
  - Nausea [Unknown]
